FAERS Safety Report 11166908 (Version 1)
Quarter: 2015Q2

REPORT INFORMATION
  Report Type: Spontaneous
  Country: IN (occurrence: IN)
  Receive Date: 20150605
  Receipt Date: 20150605
  Transmission Date: 20150821
  Serious: Yes (Hospitalization)
  Sender: FDA-Public Use
  Company Number: IN-CIPLA LTD.-2015IN04362

PATIENT

DRUGS (1)
  1. AMLODIPINE [Suspect]
     Active Substance: AMLODIPINE BESYLATE
     Dosage: 40 TABLETS OF 5 MG
     Route: 048

REACTIONS (7)
  - Dyspnoea [Recovering/Resolving]
  - Sinus tachycardia [Recovering/Resolving]
  - Non-cardiogenic pulmonary oedema [Recovering/Resolving]
  - Vomiting [Recovering/Resolving]
  - Respiratory distress [Recovering/Resolving]
  - Hypotension [Recovering/Resolving]
  - Intentional overdose [Recovering/Resolving]
